FAERS Safety Report 5908991-4 (Version None)
Quarter: 2008Q4

REPORT INFORMATION
  Report Type: 
  Country: None (occurrence: None)
  Receive Date: 20081006
  Receipt Date: 20080717
  Transmission Date: 20090506
  Serious: Yes (Other)
  Sender: FDA-Public Use
  Company Number: US-ELI_LILLY_AND_COMPANY-US200807002963

PATIENT
  Sex: Male

DRUGS (2)
  1. HUMULIN 70/30 [Suspect]
  2. NOVOLOG MIX 70/30 [Concomitant]

REACTIONS (5)
  - BLINDNESS [None]
  - DRUG DISPENSING ERROR [None]
  - EYE PAIN [None]
  - GLAUCOMA [None]
  - WRONG DRUG ADMINISTERED [None]
